FAERS Safety Report 19096230 (Version 1)
Quarter: 2021Q2

REPORT INFORMATION
  Report Type: Other
  Country: TR (occurrence: TR)
  Receive Date: 20210406
  Receipt Date: 20210406
  Transmission Date: 20210717
  Serious: Yes (Hospitalization, Other)
  Sender: FDA-Public Use
  Company Number: TR-DEXPHARM-20210422

PATIENT
  Age: 31 Year
  Sex: Female

DRUGS (4)
  1. IBUPROFEN. [Suspect]
     Active Substance: IBUPROFEN
  2. LANSOPRAZOLE. [Suspect]
     Active Substance: LANSOPRAZOLE
  3. LANSOPRAZOLE. [Suspect]
     Active Substance: LANSOPRAZOLE
     Indication: DYSPEPSIA
  4. COLCHICUM DISPERT [Suspect]
     Active Substance: COLCHICINE

REACTIONS (1)
  - Hyponatraemia [Recovered/Resolved]
